FAERS Safety Report 7328811-3 (Version None)
Quarter: 2011Q1

REPORT INFORMATION
  Report Type: 
  Country: None (occurrence: None)
  Receive Date: 20110216
  Receipt Date: 20110204
  Transmission Date: 20110831
  Serious: Yes (Hospitalization)
  Sender: FDA-Public Use
  Company Number: 2011SP005679

PATIENT
  Age: 50 Year
  Sex: Male

DRUGS (2)
  1. NASONEX [Suspect]
     Indication: PRODUCT USED FOR UNKNOWN INDICATION
     Dosage: NAS
     Route: 045
     Dates: start: 20110107, end: 20110107
  2. BALSOLENE (BALSOLENE) [Suspect]
     Indication: PRODUCT USED FOR UNKNOWN INDICATION
     Dosage: INH
     Route: 055
     Dates: start: 20110107, end: 20110107

REACTIONS (2)
  - CEREBELLAR SYNDROME [None]
  - PARAESTHESIA [None]
